FAERS Safety Report 7199741-5 (Version None)
Quarter: 2010Q4

REPORT INFORMATION
  Report Type: 
  Country: None (occurrence: None)
  Receive Date: 20101228
  Receipt Date: 20101217
  Transmission Date: 20110411
  Serious: Yes (Hospitalization)
  Sender: FDA-Public Use
  Company Number: JP-ROCHE-737156

PATIENT
  Sex: Female

DRUGS (10)
  1. ACTEMRA [Suspect]
     Indication: RHEUMATOID ARTHRITIS
     Route: 041
  2. RHEUMATREX [Suspect]
     Indication: RHEUMATOID ARTHRITIS
     Route: 048
     Dates: end: 20101025
  3. ONEALFA [Suspect]
     Route: 048
  4. LOXONIN [Concomitant]
     Route: 048
  5. MUCOSTA [Concomitant]
     Route: 048
  6. NEUROTROPIN [Concomitant]
     Route: 048
  7. METHYCOBAL [Concomitant]
     Route: 048
  8. PULMICORT [Concomitant]
     Dosage: FORM: RESPIRATORY TONIC.
     Route: 055
     Dates: start: 20100927
  9. LOXONIN [Concomitant]
     Dosage: FORM: TAPE.
     Route: 062
  10. SEREVENT [Concomitant]
     Dosage: FORM: RESPIRATORY TONIC
     Route: 055

REACTIONS (1)
  - INTERSTITIAL LUNG DISEASE [None]
